FAERS Safety Report 15806212 (Version 1)
Quarter: 2019Q1

REPORT INFORMATION
  Report Type: Spontaneous
  Country: US (occurrence: US)
  Receive Date: 20190110
  Receipt Date: 20190110
  Transmission Date: 20190417
  Serious: No
  Sender: FDA-Public Use
  Company Number: US-PFIZER INC-2019002309

PATIENT
  Age: 81 Year
  Sex: Female

DRUGS (6)
  1. LORATADINE. [Suspect]
     Active Substance: LORATADINE
     Indication: COUGH
     Dosage: 10 MG, 1X/DAY
     Route: 048
     Dates: start: 20181227
  2. LORATADINE. [Suspect]
     Active Substance: LORATADINE
     Indication: NASAL CONGESTION
  3. PREDNISONE. [Suspect]
     Active Substance: PREDNISONE
     Indication: COUGH
     Dosage: 20 MG, 1X/DAY
     Route: 048
     Dates: start: 20181227
  4. PREDNISONE. [Suspect]
     Active Substance: PREDNISONE
     Indication: NASAL CONGESTION
  5. ROBITUSSIN COUGH AND CHEST CONGESTION DM [Suspect]
     Active Substance: DEXTROMETHORPHAN HYDROBROMIDE\GUAIFENESIN
     Indication: COUGH
     Dosage: UNK [FILLS TO THE LINE MARKED ON THE CAP, TAKES IT BY MOUTH 4-5 TIMES IN A 24 HOUR PERIOD]
     Route: 048
     Dates: start: 20181224
  6. ROBITUSSIN COUGH AND CHEST CONGESTION DM [Suspect]
     Active Substance: DEXTROMETHORPHAN HYDROBROMIDE\GUAIFENESIN
     Indication: NASAL CONGESTION

REACTIONS (2)
  - Faeces soft [Not Recovered/Not Resolved]
  - Intentional product misuse [Unknown]

NARRATIVE: CASE EVENT DATE: 201812
